FAERS Safety Report 4271859-6 (Version None)
Quarter: 2004Q1

REPORT INFORMATION
  Report Type: 
  Country: None (occurrence: None)
  Receive Date: 20040115
  Receipt Date: 20040112
  Transmission Date: 20041129
  Serious: Yes (Life-Threatening)
  Sender: FDA-Public Use
  Company Number: WAES 0401USA00804

PATIENT
  Age: 43 Year
  Sex: Male

DRUGS (11)
  1. SKELAXIN [Concomitant]
  2. [THERAPY UNSPECIFIED] [Concomitant]
  3. [THERAPY UNSPECIFIED] [Concomitant]
  4. DARVOCET-N 100 [Concomitant]
  5. FOSAMAX [Suspect]
     Route: 048
     Dates: start: 20030101
  6. LONOX [Concomitant]
  7. CYCLOBENZAPRINE HYDROCHLORIDE [Concomitant]
  8. DEPAKOTE [Concomitant]
  9. NEXIUM [Concomitant]
  10. IBUPROFEN [Concomitant]
  11. LORAZEPAM [Concomitant]

REACTIONS (3)
  - ASTHENIA [None]
  - FEELING ABNORMAL [None]
  - NAUSEA [None]
